FAERS Safety Report 18275546 (Version 2)
Quarter: 2020Q4

REPORT INFORMATION
  Report Type: Spontaneous
  Country: US (occurrence: US)
  Receive Date: 20200917
  Receipt Date: 20201108
  Transmission Date: 20210113
  Serious: Yes (Death, Life-Threatening, Hospitalization, Other)
  Sender: FDA-Public Use
  Company Number: US-DRREDDYS-USA/USA/20/0126955

PATIENT
  Age: 29 Year
  Sex: Male
  Weight: 29 kg

DRUGS (3)
  1. HEPARIN SODIUM. [Suspect]
     Active Substance: HEPARIN SODIUM
     Indication: DEEP VEIN THROMBOSIS
     Dosage: 3 DOSES
     Route: 058
  2. HEPARIN SODIUM. [Suspect]
     Active Substance: HEPARIN SODIUM
     Dosage: REDUCED TO 5,000 UNITS EVERY 12 HOURS
     Route: 058
  3. HEPARIN SODIUM. [Suspect]
     Active Substance: HEPARIN SODIUM
     Indication: THROMBOSIS PROPHYLAXIS
     Route: 058

REACTIONS (5)
  - Intraventricular haemorrhage [Fatal]
  - Brain stem haemorrhage [Fatal]
  - Condition aggravated [Fatal]
  - Post procedural haemorrhage [Fatal]
  - Cerebral haemorrhage [Fatal]
